FAERS Safety Report 8887511 (Version 1)
Quarter: 2012Q4

REPORT INFORMATION
  Report Type: Spontaneous
  Country: US (occurrence: None)
  Receive Date: 20121101
  Receipt Date: 20121101
  Transmission Date: 20130627
  Serious: Yes (Hospitalization)
  Sender: FDA-Public Use
  Company Number: None

PATIENT
  Age: 81 Year
  Sex: Female
  Weight: 52.9 kg

DRUGS (18)
  1. PERCOCET [Suspect]
     Indication: CHRONIC PAIN
  2. FENTANYL [Suspect]
  3. LYRICA [Suspect]
  4. ATIVAN [Suspect]
  5. DOXEPIN [Suspect]
  6. SYNTHROID [Concomitant]
  7. COZAAR [Concomitant]
  8. COREG [Concomitant]
  9. DUONEB [Concomitant]
  10. ASA [Concomitant]
  11. LASIX [Concomitant]
  12. OXYBUTYNIN [Concomitant]
  13. FORTEO [Concomitant]
  14. PREVACID [Concomitant]
  15. MAG [Concomitant]
  16. VIT D [Concomitant]
  17. TESSALON [Concomitant]
  18. CALCIUM CARBONATE [Concomitant]

REACTIONS (7)
  - Acute respiratory failure [None]
  - Sepsis [None]
  - Unresponsive to stimuli [None]
  - Pneumonia [None]
  - Pain [None]
  - Respiratory disorder [None]
  - Cardiac disorder [None]
